FAERS Safety Report 5466295-0 (Version None)
Quarter: 2007Q3

REPORT INFORMATION
  Report Type: 
  Country: None (occurrence: None)
  Receive Date: 20070919
  Receipt Date: 20070906
  Transmission Date: 20080115
  Serious: Yes (Life-Threatening)
  Sender: FDA-Public Use
  Company Number: GXKR2007IT07819

PATIENT
  Age: 60 Year
  Sex: Female

DRUGS (3)
  1. TRAMADOLO HEXAL (NGX)(TRAMADOL) UNKNOWN [Suspect]
     Indication: ARTHRALGIA
     Dosage: 50 MG, ONCE/SINGLE, ORAL
     Route: 048
     Dates: start: 20070722, end: 20070722
  2. SOLOSA (GLIMEPIRIDE) [Concomitant]
  3. METFORMIN (METFORMIN) TABLET [Concomitant]

REACTIONS (2)
  - BRADYCARDIA [None]
  - CIRCULATORY COLLAPSE [None]
